FAERS Safety Report 17173977 (Version 1)
Quarter: 2019Q4

REPORT INFORMATION
  Report Type: Spontaneous
  Country: US (occurrence: US)
  Receive Date: 20191218
  Receipt Date: 20191218
  Transmission Date: 20200122
  Serious: Yes (Other)
  Sender: FDA-Public Use
  Company Number: None

PATIENT
  Age: 62 Year
  Sex: Female
  Weight: 110.25 kg

DRUGS (4)
  1. REPATHA [Suspect]
     Active Substance: EVOLOCUMAB
     Indication: BLOOD CHOLESTEROL INCREASED
     Dosage: ?          QUANTITY:1 INJECTION(S);OTHER FREQUENCY:EVERY TWO WEEKS;OTHER ROUTE:INJECTED INTO THE THIGH?
     Dates: start: 20191004, end: 20191115
  2. PRAVASTATIN. [Suspect]
     Active Substance: PRAVASTATIN
  3. VITAMIN D3, B12 INJECTION MONTHLY [Concomitant]
  4. ZETIA [Suspect]
     Active Substance: EZETIMIBE

REACTIONS (3)
  - Blood creatine phosphokinase increased [None]
  - Myalgia [None]
  - Arthralgia [None]

NARRATIVE: CASE EVENT DATE: 20191119
